FAERS Safety Report 6538698-4 (Version None)
Quarter: 2010Q1

REPORT INFORMATION
  Report Type: 
  Country: None (occurrence: None)
  Receive Date: 20100114
  Receipt Date: 20100114
  Transmission Date: 20100710
  Serious: No
  Sender: FDA-Public Use
  Company Number: None

PATIENT
  Sex: Female
  Weight: 45.3597 kg

DRUGS (2)
  1. CLONIDINE [Suspect]
     Indication: AUTISM
     Dosage: ONE PATCH Q 6 DAYS
  2. CLONIDINE [Suspect]
     Indication: HYPOVENTILATION
     Dosage: ONE PATCH Q 6 DAYS

REACTIONS (2)
  - PRODUCT ADHESION ISSUE [None]
  - PRODUCT SUBSTITUTION ISSUE [None]
